FAERS Safety Report 19819160 (Version 1)
Quarter: 2021Q3

REPORT INFORMATION
  Report Type: Report from Study
  Country: IE (occurrence: IE)
  Receive Date: 20210913
  Receipt Date: 20210913
  Transmission Date: 20211014
  Serious: Yes (Other)
  Sender: FDA-Public Use
  Company Number: IE-SA-2021SA294141

PATIENT
  Age: 44 Year
  Sex: Female

DRUGS (1)
  1. TERIFLUNOMIDE. [Suspect]
     Active Substance: TERIFLUNOMIDE
     Indication: RELAPSING-REMITTING MULTIPLE SCLEROSIS
     Dosage: UNK UNK, QD
     Route: 048
     Dates: start: 20210819

REACTIONS (3)
  - Abnormal behaviour [Not Recovered/Not Resolved]
  - Mental impairment [Not Recovered/Not Resolved]
  - Substance abuse [Unknown]

NARRATIVE: CASE EVENT DATE: 20210827
